FAERS Safety Report 18161774 (Version 2)
Quarter: 2020Q4

REPORT INFORMATION
  Report Type: Spontaneous
  Country: BD (occurrence: BD)
  Receive Date: 20200817
  Receipt Date: 20201023
  Transmission Date: 20210113
  Serious: Yes (Death)
  Sender: FDA-Public Use
  Company Number: BD-ROCHE-2651079

PATIENT
  Age: 78 Year
  Sex: Male
  Weight: 82 kg

DRUGS (2)
  1. ACTEMRA [Suspect]
     Active Substance: TOCILIZUMAB
     Indication: COVID-19 PNEUMONIA
     Route: 042
     Dates: start: 20200720, end: 20200720
  2. AVASTIN [Suspect]
     Active Substance: BEVACIZUMAB
     Indication: COVID-19
     Route: 065
     Dates: start: 20200722

REACTIONS (3)
  - Product use in unapproved indication [Unknown]
  - Off label use [Unknown]
  - Death [Fatal]

NARRATIVE: CASE EVENT DATE: 20200804
